FAERS Safety Report 21366789 (Version 1)
Quarter: 2022Q3

REPORT INFORMATION
  Report Type: Spontaneous
  Country: US (occurrence: US)
  Receive Date: 20220923
  Receipt Date: 20220923
  Transmission Date: 20221026
  Serious: No
  Sender: FDA-Public Use
  Company Number: US-SA-SAC20220914000280

PATIENT
  Sex: Female
  Weight: 85.72 kg

DRUGS (3)
  1. DUPIXENT [Suspect]
     Active Substance: DUPILUMAB
     Indication: Dermatitis atopic
     Dosage: 300 MG, QOW
     Route: 058
     Dates: start: 20220810
  2. CLOBETASOL [Concomitant]
     Active Substance: CLOBETASOL
  3. MIRENA [Concomitant]
     Active Substance: LEVONORGESTREL
     Dosage: 20 UG, QD

REACTIONS (4)
  - Illness [Unknown]
  - Nasopharyngitis [Unknown]
  - Sinus disorder [Unknown]
  - Hypersensitivity [Unknown]
